FAERS Safety Report 7684232-5 (Version None)
Quarter: 2011Q3

REPORT INFORMATION
  Report Type: 
  Country: None (occurrence: None)
  Receive Date: 20110815
  Receipt Date: 20110804
  Transmission Date: 20111222
  Serious: Yes (Hospitalization)
  Sender: FDA-Public Use
  Company Number: DE-AMGEN-DEUSP2011039453

PATIENT
  Age: 68 Year
  Sex: Female
  Weight: 60 kg

DRUGS (7)
  1. ENOXAPARIN SODIUM [Concomitant]
     Dosage: 0.6 UNK, BID
  2. PROLIA [Suspect]
     Indication: OSTEOPOROSIS
     Dosage: UNK
     Route: 058
     Dates: start: 20100801, end: 20110801
  3. ERGOCALCIFEROL [Concomitant]
     Dosage: 1000 UNK, UNK
  4. CALCIUM EFFERVESCENT [Concomitant]
     Dosage: 1 UNK, UNK
  5. NOVALGIN                           /00169801/ [Concomitant]
     Dosage: UNK
  6. FORTECORTIN                        /00016001/ [Concomitant]
     Dosage: 4 MG, UNK
  7. NOVOBAN [Concomitant]
     Dosage: 5 MG, PRN

REACTIONS (1)
  - LUNG CARCINOMA CELL TYPE UNSPECIFIED STAGE III [None]
